FAERS Safety Report 9018353 (Version 1)
Quarter: 2013Q1

REPORT INFORMATION
  Report Type: Spontaneous
  Country: US (occurrence: None)
  Receive Date: 20130111
  Receipt Date: 20130111
  Transmission Date: 20140127
  Serious: Yes (Hospitalization)
  Sender: FDA-Public Use
  Company Number: None

PATIENT
  Age: 60 Year
  Sex: Male
  Weight: 119 kg

DRUGS (3)
  1. NOVOLIN 70/30 [Suspect]
  2. METFORMIN [Suspect]
     Dosage: 1000MG BID PO
     Route: 048
  3. GLYBURIDE [Suspect]
     Dosage: 5MG BID PO
     Route: 048

REACTIONS (2)
  - Mental status changes [None]
  - Blood glucose decreased [None]
